FAERS Safety Report 18732610 (Version 1)
Quarter: 2021Q1

REPORT INFORMATION
  Report Type: Spontaneous
  Country: US (occurrence: US)
  Receive Date: 20210112
  Receipt Date: 20210112
  Transmission Date: 20210419
  Serious: No
  Sender: FDA-Public Use
  Company Number: US-GALDERMA-US2020047444

PATIENT

DRUGS (2)
  1. AKLIEF [Suspect]
     Active Substance: TRIFAROTENE
     Indication: PRODUCT USED FOR UNKNOWN INDICATION
     Dosage: 0.005%
     Route: 061
  2. ONEXTON/CLINDAMYCIN PHOSPHATE AND BENZOYL PEROXIDE GEL, 1.2%/3.75% [Concomitant]
     Indication: PRODUCT USED FOR UNKNOWN INDICATION

REACTIONS (2)
  - Rash [Unknown]
  - Dermatitis contact [Unknown]
